FAERS Safety Report 15317637 (Version 1)
Quarter: 2018Q3

REPORT INFORMATION
  Report Type: Report from Study
  Country: US (occurrence: US)
  Receive Date: 20180824
  Receipt Date: 20180824
  Transmission Date: 20181010
  Serious: Yes (Hospitalization)
  Sender: FDA-Public Use
  Company Number: US-ACTELION-A-NJ2018-171160

PATIENT
  Age: 50 Year
  Sex: Female
  Weight: 76.19 kg

DRUGS (7)
  1. UPTRAVI [Suspect]
     Active Substance: SELEXIPAG
     Indication: PULMONARY ARTERIAL HYPERTENSION
     Dosage: 200 MCG, BID
     Route: 048
  2. UPTRAVI [Suspect]
     Active Substance: SELEXIPAG
     Dosage: 400 MCG, BID
     Route: 048
  3. UPTRAVI [Suspect]
     Active Substance: SELEXIPAG
     Dosage: 800 MCG, UNK
     Route: 048
  4. UPTRAVI [Suspect]
     Active Substance: SELEXIPAG
     Dosage: 1000 MCG, BID
     Route: 048
  5. TYVASO [Suspect]
     Active Substance: TREPROSTINIL
     Indication: PULMONARY ARTERIAL HYPERTENSION
     Dosage: 18?54 MCG
     Route: 055
     Dates: start: 20140123
  6. UPTRAVI [Suspect]
     Active Substance: SELEXIPAG
     Dosage: 600 MCG, BID
     Route: 048
  7. TRACLEER [Concomitant]
     Active Substance: BOSENTAN
     Indication: PULMONARY ARTERIAL HYPERTENSION
     Route: 048

REACTIONS (18)
  - Influenza [Unknown]
  - Nausea [Unknown]
  - Fatigue [Unknown]
  - Neck pain [Unknown]
  - Headache [Unknown]
  - Pain in extremity [Unknown]
  - Decreased appetite [Unknown]
  - Rash [Unknown]
  - Insomnia [Unknown]
  - Diarrhoea [Unknown]
  - Pain [Unknown]
  - Paraesthesia [Unknown]
  - Arthralgia [Unknown]
  - Pruritus [Unknown]
  - Flushing [Unknown]
  - Burning sensation [Unknown]
  - Epistaxis [Unknown]
  - Pyrexia [Unknown]
